FAERS Safety Report 4727102-4 (Version None)
Quarter: 2005Q3

REPORT INFORMATION
  Report Type: 
  Country: None (occurrence: None)
  Receive Date: 20050726
  Receipt Date: 20050715
  Transmission Date: 20060218
  Serious: Yes (Other)
  Sender: FDA-Public Use
  Company Number: 200512803BCC

PATIENT
  Sex: Male
  Weight: 79.3795 kg

DRUGS (6)
  1. ASPIRIN [Suspect]
     Indication: MYOCARDIAL INFARCTION
     Dosage: SEE IMAGE, ORAL
     Route: 048
     Dates: start: 19850101
  2. ASPIRIN [Suspect]
     Indication: PROPHYLAXIS
     Dosage: SEE IMAGE, ORAL
     Route: 048
     Dates: start: 19850101
  3. ASPIRIN [Suspect]
  4. LISINOPRIL [Concomitant]
  5. METOPROLOL [Concomitant]
  6. CHOLESTEROL MEDICATION [Concomitant]

REACTIONS (1)
  - HALLUCINATION [None]
